FAERS Safety Report 19622945 (Version 2)
Quarter: 2021Q3

REPORT INFORMATION
  Report Type: Report from Study
  Country: None (occurrence: US)
  Receive Date: 20210728
  Receipt Date: 20210805
  Transmission Date: 20211014
  Serious: Yes (Other)
  Sender: FDA-Public Use
  Company Number: US-ABBVIE-21K-163-3875193-00

PATIENT
  Age: 63 Year
  Sex: Female

DRUGS (3)
  1. HUMIRA [Suspect]
     Active Substance: ADALIMUMAB
     Indication: CROHN^S DISEASE
     Dosage: CITRATE FREE
     Route: 058
     Dates: start: 20200708, end: 202008
  2. HUMIRA [Interacting]
     Active Substance: ADALIMUMAB
     Dosage: CITRATE FREE
     Route: 058
     Dates: start: 202106
  3. HUMIRA [Interacting]
     Active Substance: ADALIMUMAB
     Dosage: CITRATE FREE
     Route: 058
     Dates: start: 2019, end: 202104

REACTIONS (16)
  - Constipation [Unknown]
  - Drug hypersensitivity [Unknown]
  - Ear congestion [Unknown]
  - Respiratory tract congestion [Unknown]
  - Ear infection [Recovering/Resolving]
  - Gastric infection [Unknown]
  - Dyschezia [Unknown]
  - Chills [Unknown]
  - Vomiting [Recovered/Resolved]
  - Swelling face [Recovered/Resolved]
  - Fatigue [Unknown]
  - Drug hypersensitivity [Unknown]
  - Drug hypersensitivity [Recovering/Resolving]
  - Abnormal faeces [Unknown]
  - Lactose intolerance [Unknown]
  - Abdominal pain upper [Recovered/Resolved]

NARRATIVE: CASE EVENT DATE: 2021
